FAERS Safety Report 7229790-X (Version None)
Quarter: 2011Q1

REPORT INFORMATION
  Report Type: 
  Country: None (occurrence: None)
  Receive Date: 20110117
  Receipt Date: 20110110
  Transmission Date: 20110831
  Serious: Yes (Other)
  Sender: FDA-Public Use
  Company Number: US-ABBOTT-11P-163-0696833-00

PATIENT
  Age: 58 Year
  Sex: Female
  Weight: 48.124 kg

DRUGS (7)
  1. LISINOPRIL [Concomitant]
     Indication: HYPERTENSION
  2. BONIVA [Concomitant]
     Indication: PRODUCT USED FOR UNKNOWN INDICATION
  3. LEVOTHYROXINE [Concomitant]
     Indication: HYPOTHYROIDISM
  4. PRAVASTATIN [Concomitant]
     Indication: BLOOD CHOLESTEROL INCREASED
  5. HUMIRA [Suspect]
     Route: 058
     Dates: start: 20070101
  6. HUMIRA [Suspect]
     Indication: RHEUMATOID ARTHRITIS
     Route: 058
     Dates: start: 20051101, end: 20070101
  7. BALSALAZIDE DISODIUM [Concomitant]
     Indication: COLITIS
     Dosage: 4500MG; 6 TABLETS DAILY

REACTIONS (11)
  - TOOTH ABSCESS [None]
  - ARTHRITIS INFECTIVE [None]
  - HAEMOGLOBIN DECREASED [None]
  - CONTUSION [None]
  - DRUG EFFECT DECREASED [None]
  - FATIGUE [None]
  - WEIGHT BEARING DIFFICULTY [None]
  - WHITE BLOOD CELL COUNT INCREASED [None]
  - JOINT SWELLING [None]
  - ANAEMIA [None]
  - ARTHRALGIA [None]
